FAERS Safety Report 11605242 (Version 1)
Quarter: 2015Q4

REPORT INFORMATION
  Report Type: Spontaneous
  Country: EG (occurrence: EG)
  Receive Date: 20151007
  Receipt Date: 20151007
  Transmission Date: 20160304
  Serious: Yes (Death)
  Sender: FDA-Public Use
  Company Number: EG-SA-2015SA153894

PATIENT

DRUGS (2)
  1. JEVTANA [Suspect]
     Active Substance: CABAZITAXEL
     Route: 065
     Dates: start: 20150817, end: 20150817
  2. JEVTANA [Suspect]
     Active Substance: CABAZITAXEL
     Route: 065
     Dates: start: 20150908, end: 20150908

REACTIONS (1)
  - Death [Fatal]

NARRATIVE: CASE EVENT DATE: 2015
